FAERS Safety Report 5202799-3 (Version None)
Quarter: 2006Q4

REPORT INFORMATION
  Report Type: 
  Country: None (occurrence: None)
  Receive Date: 20061018
  Receipt Date: 20060126
  Transmission Date: 20070319
  Serious: Yes (Life-Threatening)
  Sender: FDA-Public Use
  Company Number: 06P-163-0323567-00

PATIENT
  Age: 47 Year
  Sex: Male
  Weight: 52 kg

DRUGS (9)
  1. KALETRA [Suspect]
     Indication: HIV INFECTION
     Dosage: 3 CAPSULE, 2 IN 1 D, ORAL
     Route: 048
     Dates: start: 20040902, end: 20051026
  2. BLINDED SCH 417690 [Suspect]
     Indication: HIV INFECTION
     Dosage: ORAL
     Route: 048
     Dates: start: 20050509, end: 20051025
  3. SAQUINAVIR MESILATE [Concomitant]
  4. TENOFOVIR [Concomitant]
  5. LAMIVUDINE [Concomitant]
  6. OXYCODONE HCL [Concomitant]
  7. MEGESTROL ACETATE [Concomitant]
  8. BACTRIM [Concomitant]
  9. AZITHROMYCIN [Concomitant]

REACTIONS (2)
  - BLOOD GLUCOSE ABNORMAL [None]
  - BLOOD TRIGLYCERIDES INCREASED [None]
